FAERS Safety Report 6270920-4 (Version None)
Quarter: 2009Q3

REPORT INFORMATION
  Report Type: 
  Country: None (occurrence: None)
  Receive Date: 20090716
  Receipt Date: 20090710
  Transmission Date: 20100115
  Serious: Yes (Hospitalization, Other)
  Sender: FDA-Public Use
  Company Number: US-ASTRAZENECA-2009UW12948

PATIENT
  Age: 30 Year
  Sex: Female
  Weight: 81.6 kg

DRUGS (2)
  1. SEROQUEL [Suspect]
     Indication: SLEEP DISORDER
     Dosage: 50 MG TO 300 MG
     Route: 048
     Dates: start: 20010101, end: 20060101
  2. CYMBALTA [Concomitant]
     Dates: start: 20080101

REACTIONS (8)
  - ABDOMINAL PAIN [None]
  - BLOOD CHOLESTEROL INCREASED [None]
  - DIABETES MELLITUS [None]
  - FIBROMYALGIA [None]
  - OBESITY [None]
  - PITUITARY TUMOUR BENIGN [None]
  - TARDIVE DYSKINESIA [None]
  - WEIGHT INCREASED [None]
